FAERS Safety Report 11375988 (Version 1)
Quarter: 2015Q3

REPORT INFORMATION
  Report Type: Other
  Country: DE (occurrence: DE)
  Receive Date: 20150813
  Receipt Date: 20150813
  Transmission Date: 20151125
  Serious: Yes (Congenital Anomaly, Other)
  Sender: FDA-Public Use
  Company Number: DE-MYLANLABS-2015M1026343

PATIENT

DRUGS (4)
  1. FEMIBION [Concomitant]
     Active Substance: VITAMINS
     Indication: PROPHYLAXIS OF NEURAL TUBE DEFECT
     Dosage: UNK
     Route: 064
     Dates: start: 20140724, end: 20150219
  2. BISOPROLOL [Suspect]
     Active Substance: BISOPROLOL
     Indication: CARDIAC DISORDER
     Dosage: UNK (5 [MG/D ]/ DOSAGE IN THE BEGINNING 5 MG/D LATER REDUCTION TO 2.5 MG/D)
     Route: 064
     Dates: start: 20140604, end: 20150220
  3. LOSARTAN. [Suspect]
     Active Substance: LOSARTAN
     Indication: CARDIAC DISORDER
     Dosage: 10 MG, QD (10 [MG/D ])
     Route: 064
     Dates: start: 20140604, end: 20140731
  4. RHOPHYLAC [Concomitant]
     Active Substance: HUMAN RHO(D) IMMUNE GLOBULIN
     Indication: PROPHYLAXIS AGAINST RH ISOIMMUNISATION
     Dosage: UNK
     Route: 064
     Dates: start: 20150107, end: 20150107

REACTIONS (7)
  - Patent ductus arteriosus [Unknown]
  - Atrial septal defect [Unknown]
  - Foetal exposure during pregnancy [Recovered/Resolved]
  - Talipes [Recovered/Resolved with Sequelae]
  - Respiratory disorder neonatal [Recovered/Resolved]
  - Small for dates baby [Recovered/Resolved]
  - Umbilical hernia [Unknown]

NARRATIVE: CASE EVENT DATE: 20150220
